FAERS Safety Report 8069004-4 (Version None)
Quarter: 2011Q4

REPORT INFORMATION
  Report Type: 
  Country: None (occurrence: None)
  Receive Date: 20111221
  Receipt Date: 20110317
  Transmission Date: 20120403
  Serious: Yes (Other)
  Sender: FDA-Public Use
  Company Number: PHHY2011US06984

PATIENT
  Age: 3 Year
  Sex: Male
  Weight: 17.6 kg

DRUGS (5)
  1. EXJADE [Suspect]
     Indication: IRON OVERLOAD
     Dosage: 375 MG, ORAL
     Route: 048
     Dates: start: 20110120
  2. EXJADE [Suspect]
     Indication: THALASSAEMIA
     Dosage: 375 MG, ORAL
     Route: 048
     Dates: start: 20110120
  3. FOLIC ACID [Concomitant]
  4. ALBUTEROL [Concomitant]
  5. FLOVENT [Concomitant]

REACTIONS (1)
  - ABDOMINAL PAIN [None]
